FAERS Safety Report 7639566-7 (Version None)
Quarter: 2011Q3

REPORT INFORMATION
  Report Type: 
  Country: None (occurrence: None)
  Receive Date: 20110722
  Receipt Date: 20110708
  Transmission Date: 20111222
  Serious: Yes (Hospitalization, Other)
  Sender: FDA-Public Use
  Company Number: 386762

PATIENT
  Age: 45 Year
  Sex: Male
  Weight: 91 kg

DRUGS (10)
  1. PHENYTOIN [Suspect]
     Indication: PRODUCT USED FOR UNKNOWN INDICATION
     Dosage: 50 MG MILLIGRAM(S),
     Dates: end: 20090814
  2. ONDANSETRON [Concomitant]
  3. VALPROATE SODIUM [Concomitant]
  4. NEUPOGEN [Suspect]
     Indication: CHEMOTHERAPY
     Dosage: SUBCUTANEOUS
     Route: 058
  5. AVASTIN [Suspect]
     Indication: GLIOBLASTOMA MULTIFORME
     Dosage: 1287.5 MG MILLIGRAM(S), 21 DAY; INTRAVENOUS
     Route: 042
     Dates: start: 20090721
  6. NEULASTA [Suspect]
     Indication: CHEMOTHERAPY
     Dosage: 6 MG, 21 DAY, SUBCUTANEOUS
     Route: 058
     Dates: start: 20090722
  7. DEXAMETHASONE [Concomitant]
  8. CARBOPLATIN (GLIOBLASTOMA MULTIFORME) [Concomitant]
  9. METOCLOPRAMIDE [Concomitant]
  10. WARFARIN [Concomitant]

REACTIONS (8)
  - DEEP VEIN THROMBOSIS [None]
  - PETECHIAE [None]
  - DERMATITIS ALLERGIC [None]
  - BODY TEMPERATURE INCREASED [None]
  - CYTOKINE STORM [None]
  - IMPETIGO [None]
  - DELIRIUM [None]
  - CONFUSIONAL STATE [None]
